FAERS Safety Report 7479183-5 (Version None)
Quarter: 2011Q2

REPORT INFORMATION
  Report Type: 
  Country: None (occurrence: None)
  Receive Date: 20110513
  Receipt Date: 20110506
  Transmission Date: 20111010
  Serious: Yes (Hospitalization)
  Sender: FDA-Public Use
  Company Number: A0781618A

PATIENT
  Age: 63 Year
  Sex: Male
  Weight: 97.7 kg

DRUGS (11)
  1. RELAFEN [Concomitant]
  2. VERAPAMIL [Concomitant]
  3. COZAAR [Concomitant]
  4. LIPITOR [Concomitant]
  5. AVANDIA [Suspect]
     Dosage: 4MG TWICE PER DAY
     Route: 048
     Dates: start: 19991201, end: 20050601
  6. HUMULIN N [Concomitant]
  7. REGULAR INSULIN [Concomitant]
  8. CLARITIN [Concomitant]
  9. PROZAC [Concomitant]
  10. GLUCOTROL [Concomitant]
  11. ASPIRIN [Concomitant]

REACTIONS (8)
  - CARDIOGENIC SHOCK [None]
  - RESPIRATORY FAILURE [None]
  - CARDIAC ARREST [None]
  - RESPIRATORY TRACT INFECTION [None]
  - BRADYCARDIA [None]
  - CORONARY ARTERY THROMBOSIS [None]
  - MYOCARDIAL INFARCTION [None]
  - CORONARY ARTERY DISEASE [None]
